FAERS Safety Report 4741847-1 (Version None)
Quarter: 2005Q3

REPORT INFORMATION
  Report Type: 
  Country: None (occurrence: None)
  Receive Date: 20050810
  Receipt Date: 20050311
  Transmission Date: 20060218
  Serious: Yes (Hospitalization)
  Sender: FDA-Public Use
  Company Number: US-MERCK-0503USA02792

PATIENT
  Age: 60 Year
  Sex: Male
  Weight: 93 kg

DRUGS (6)
  1. VIOXX [Suspect]
     Indication: PAIN IN EXTREMITY
     Route: 048
     Dates: start: 20030806, end: 20040810
  2. VIOXX [Suspect]
     Indication: MYALGIA
     Route: 048
     Dates: start: 20030806, end: 20040810
  3. ZOCOR [Concomitant]
     Route: 065
  4. ZYPREXA [Concomitant]
     Indication: MOOD ALTERED
     Route: 065
     Dates: start: 20010101, end: 20040301
  5. PROZAC [Concomitant]
     Route: 065
  6. DIOVAN [Concomitant]
     Indication: BLOOD CHOLESTEROL INCREASED
     Route: 065
     Dates: start: 20021101

REACTIONS (3)
  - ARTERIAL OCCLUSIVE DISEASE [None]
  - ISCHAEMIA [None]
  - MYOCARDIAL INFARCTION [None]
